FAERS Safety Report 23167181 (Version 2)
Quarter: 2024Q2

REPORT INFORMATION
  Report Type: Report from Study
  Country: US (occurrence: US)
  Receive Date: 20231109
  Receipt Date: 20240512
  Transmission Date: 20240716
  Serious: Yes (Other)
  Sender: FDA-Public Use
  Company Number: US-002147023-NVSC2023US238740

PATIENT
  Sex: Female

DRUGS (1)
  1. ENTRESTO [Suspect]
     Active Substance: SACUBITRIL\VALSARTAN
     Indication: Product used for unknown indication
     Dosage: UNK
     Route: 065

REACTIONS (7)
  - Cardiac infection [Unknown]
  - Ventricular fibrillation [Unknown]
  - Dyspnoea [Unknown]
  - Cough [Unknown]
  - Hypersensitivity [Unknown]
  - Hypotension [Unknown]
  - Gait disturbance [Unknown]
